FAERS Safety Report 13726621 (Version 1)
Quarter: 2017Q3

REPORT INFORMATION
  Report Type: Spontaneous
  Country: ZA (occurrence: ZA)
  Receive Date: 20170706
  Receipt Date: 20170706
  Transmission Date: 20171127
  Serious: Yes (Life-Threatening, Hospitalization, Congenital Anomaly)
  Sender: FDA-Public Use
  Company Number: ZA-ABBVIE-17P-143-2029423-00

PATIENT

DRUGS (1)
  1. EPILIZINE [Suspect]
     Active Substance: VALPROATE SODIUM
     Indication: PRODUCT USED FOR UNKNOWN INDICATION
     Route: 064
     Dates: start: 2015

REACTIONS (4)
  - Malaise [Unknown]
  - Hydrocephalus [Unknown]
  - Influenza [Unknown]
  - Foetal exposure during pregnancy [Unknown]
